FAERS Safety Report 8554043 (Version 3)
Quarter: 2013Q4

REPORT INFORMATION
  Report Type: Spontaneous
  Country: US (occurrence: None)
  Receive Date: 20120315
  Receipt Date: 20131226
  Transmission Date: 20140711
  Serious: Yes (Other)
  Sender: FDA-Public Use
  Company Number: PHHY2011US49211

PATIENT
  Age: 33 Year
  Sex: Female

DRUGS (7)
  1. GILENYA (FTY) CAPSULE, 0.5 MG [Suspect]
     Indication: MULTIPLE SCLEROSIS
     Dosage: 0.5 MG, QD, ORAL
     Route: 048
     Dates: start: 20110202
  2. BACLOFEN (BACLOFEN) [Concomitant]
  3. VITAMIN D (ERGOCALCIFEROL) [Concomitant]
  4. TEMAZEPAM (TEMAZEPAM) [Concomitant]
  5. VALACICLOVIR (VALACICLOVIR) [Concomitant]
  6. DROSPIRENONE (DROSPIRENONE) [Concomitant]
  7. PRISTIQ EXTENDED RELEASE [Concomitant]

REACTIONS (2)
  - Oral pain [None]
  - Aphthous stomatitis [None]
